FAERS Safety Report 8292347-6 (Version None)
Quarter: 2012Q2

REPORT INFORMATION
  Report Type: 
  Country: None (occurrence: None)
  Receive Date: 20120417
  Receipt Date: 20110620
  Transmission Date: 20120825
  Serious: No
  Sender: FDA-Public Use
  Company Number: US-BAUSCH-2011BL004092

PATIENT
  Age: 69 Year
  Sex: Female

DRUGS (3)
  1. ATENOLOL [Concomitant]
  2. FLUNISOLIDE [Suspect]
     Indication: PRODUCT USED FOR UNKNOWN INDICATION
     Route: 045
     Dates: start: 20110101
  3. LIPITOR [Concomitant]

REACTIONS (1)
  - NASAL DISCOMFORT [None]
